FAERS Safety Report 24244683 (Version 1)
Quarter: 2024Q3

REPORT INFORMATION
  Report Type: Spontaneous
  Country: US (occurrence: None)
  Receive Date: 20240823
  Receipt Date: 20240823
  Transmission Date: 20241017
  Serious: Yes (Other)
  Sender: Public
  Company Number: None

PATIENT
  Age: 48 Year
  Sex: Female

DRUGS (1)
  1. MOUNJARO [Suspect]
     Active Substance: TIRZEPATIDE
     Dates: start: 20240607, end: 20240805

REACTIONS (7)
  - Pruritus [None]
  - Rash [None]
  - Drug ineffective [None]
  - Wound [None]
  - Skin ulcer [None]
  - Insomnia [None]
  - Hypersensitivity [None]

NARRATIVE: CASE EVENT DATE: 20240729
